FAERS Safety Report 16155224 (Version 1)
Quarter: 2019Q2

REPORT INFORMATION
  Report Type: Spontaneous
  Country: NL (occurrence: NL)
  Receive Date: 20190403
  Receipt Date: 20190403
  Transmission Date: 20190711
  Serious: Yes (Other)
  Sender: FDA-Public Use
  Company Number: NL-MYLANLABS-2019M1029786

PATIENT
  Age: 71 Year
  Sex: Male
  Weight: 90 kg

DRUGS (7)
  1. XARELTO [Concomitant]
     Active Substance: RIVAROXABAN
  2. CLINDAMYCIN. [Suspect]
     Active Substance: CLINDAMYCIN
     Indication: INFECTION
     Dosage: 300 MILLIGRAM, QD
     Dates: start: 20180804
  3. CLINDAMYCIN. [Suspect]
     Active Substance: CLINDAMYCIN
     Dosage: 600 MILLIGRAM
     Route: 048
     Dates: start: 20180803
  4. PERINDOPRIL [Concomitant]
     Active Substance: PERINDOPRIL
  5. SOTALOL. [Concomitant]
     Active Substance: SOTALOL
  6. OMEPRAZOL                          /00661201/ [Concomitant]
     Active Substance: OMEPRAZOLE
  7. DUSPATAL                           /00139402/ [Concomitant]

REACTIONS (6)
  - Dermatitis bullous [Recovered/Resolved]
  - Tongue dry [Not Recovered/Not Resolved]
  - Ear infection [Recovered/Resolved]
  - Gastrointestinal disorder [Not Recovered/Not Resolved]
  - Dysphagia [Recovering/Resolving]
  - Taste disorder [Not Recovered/Not Resolved]

NARRATIVE: CASE EVENT DATE: 20180804
